FAERS Safety Report 11197631 (Version 4)
Quarter: 2015Q3

REPORT INFORMATION
  Report Type: Spontaneous
  Country: US (occurrence: US)
  Receive Date: 20150617
  Receipt Date: 20150924
  Transmission Date: 20151125
  Serious: Yes (Hospitalization, Other)
  Sender: FDA-Public Use
  Company Number: US-GLAXOSMITHKLINE-US2015GSK084585

PATIENT
  Age: 55 Year
  Sex: Male
  Weight: 73.18 kg

DRUGS (5)
  1. VOTRIENT [Suspect]
     Active Substance: PAZOPANIB HYDROCHLORIDE
     Dosage: 600 MG, QD
     Dates: start: 20150806
  2. VOTRIENT [Suspect]
     Active Substance: PAZOPANIB HYDROCHLORIDE
     Indication: RENAL CANCER
     Dosage: 800 MG, U
     Route: 065
     Dates: start: 20130731
  3. VOTRIENT [Suspect]
     Active Substance: PAZOPANIB HYDROCHLORIDE
     Dosage: 800 MG, QD
     Dates: start: 201308, end: 201507
  4. VOTRIENT [Suspect]
     Active Substance: PAZOPANIB HYDROCHLORIDE
     Indication: RENAL CELL CARCINOMA
     Dosage: UNK
  5. VOTRIENT [Suspect]
     Active Substance: PAZOPANIB HYDROCHLORIDE
     Dosage: 600 MG, QD
     Dates: start: 20130806

REACTIONS (13)
  - Bone pain [Unknown]
  - Joint swelling [Unknown]
  - Pancreatectomy [Unknown]
  - Myalgia [Recovered/Resolved]
  - Drug dose omission [Unknown]
  - Arthralgia [Unknown]
  - Pigmentation disorder [Unknown]
  - Chest pain [Unknown]
  - Diarrhoea [Unknown]
  - Hair colour changes [Unknown]
  - Mobility decreased [Unknown]
  - Peripheral swelling [Unknown]
  - Pulmonary mass [Unknown]

NARRATIVE: CASE EVENT DATE: 201402
